FAERS Safety Report 18452757 (Version 6)
Quarter: 2021Q3

REPORT INFORMATION
  Report Type: Spontaneous
  Country: US (occurrence: US)
  Receive Date: 20201102
  Receipt Date: 20210729
  Transmission Date: 20211014
  Serious: No
  Sender: FDA-Public Use
  Company Number: US-PFIZER INC-2020411405

PATIENT
  Age: 16 Year
  Sex: Male

DRUGS (2)
  1. GENOTROPIN [Suspect]
     Active Substance: SOMATROPIN
     Dosage: 4.2 MG
     Dates: start: 2015
  2. GENOTROPIN [Suspect]
     Active Substance: SOMATROPIN
     Indication: GROWTH HORMONE DEFICIENCY
     Dosage: 2.4 MG, 1X/DAY

REACTIONS (5)
  - Drug dose omission by device [Unknown]
  - Device mechanical issue [Unknown]
  - Device use issue [Unknown]
  - Expired device used [Unknown]
  - Device information output issue [Unknown]
